FAERS Safety Report 20581601 (Version 1)
Quarter: 2022Q1

REPORT INFORMATION
  Report Type: Report from Study
  Country: CA (occurrence: CA)
  Receive Date: 20220311
  Receipt Date: 20220311
  Transmission Date: 20220423
  Serious: Yes (Other)
  Sender: FDA-Public Use
  Company Number: None

PATIENT
  Age: 69 Year
  Sex: Male

DRUGS (16)
  1. AMITRIPTYLINE [Suspect]
     Active Substance: AMITRIPTYLINE
     Indication: Product used for unknown indication
  2. ATORVASTATIN [Suspect]
     Active Substance: ATORVASTATIN
     Indication: Migraine
  3. PREGABALIN [Suspect]
     Active Substance: PREGABALIN
     Indication: Migraine
  4. BISACODYL [Suspect]
     Active Substance: BISACODYL
     Indication: Product used for unknown indication
  5. CARBAMAZEPINE [Suspect]
     Active Substance: CARBAMAZEPINE
     Indication: Migraine
  6. CIPROFLOXACIN [Suspect]
     Active Substance: CIPROFLOXACIN
     Indication: Migraine
     Dosage: 2 EVERY 1 DAYS
  7. DOCUSATE [Suspect]
     Active Substance: DOCUSATE
     Indication: Migraine
  8. MOMETASONE [Suspect]
     Active Substance: MOMETASONE
     Indication: Product used for unknown indication
     Dosage: INHALATION
     Route: 055
  9. MORPHINE [Suspect]
     Active Substance: MORPHINE
     Indication: Migraine
     Dosage: 1 EVERY 1 DAYS
  10. CEPHALEXIN [Concomitant]
     Active Substance: CEPHALEXIN
     Dosage: 4 EVERY 1 DAYS
  11. GLYCOPYRROLATE\INDACATEROL MALEATE [Suspect]
     Active Substance: GLYCOPYRROLATE\INDACATEROL MALEATE
     Indication: Migraine
     Dosage: 1 EVERY 1 DAYS
     Route: 055
  12. RABEPRAZOLE SODIUM [Suspect]
     Active Substance: RABEPRAZOLE SODIUM
     Indication: Migraine
     Dosage: 1 EVERY 1 DAYS
  13. SULFASALAZINE [Suspect]
     Active Substance: SULFASALAZINE
     Indication: Migraine
  14. MOXIFLOXACIN [Concomitant]
     Active Substance: MOXIFLOXACIN
     Dosage: 1 EVERY 1 DAYS
  15. PREDNISONE [Concomitant]
     Active Substance: PREDNISONE
  16. BIAXIN [Concomitant]
     Active Substance: CLARITHROMYCIN
     Dosage: 1 EVERY 1 DAYS

REACTIONS (12)
  - Asthma [Unknown]
  - Clumsiness [Unknown]
  - Dizziness [Unknown]
  - Drug intolerance [Unknown]
  - Dysarthria [Unknown]
  - Dyskinesia [Unknown]
  - Limb injury [Unknown]
  - Oedema [Unknown]
  - Pain [Unknown]
  - Respiration abnormal [Unknown]
  - Sitting disability [Unknown]
  - Speech disorder [Unknown]
